FAERS Safety Report 7180546-6 (Version None)
Quarter: 2010Q4

REPORT INFORMATION
  Report Type: 
  Country: None (occurrence: None)
  Receive Date: 20101221
  Receipt Date: 20101216
  Transmission Date: 20110411
  Serious: Yes (Other)
  Sender: FDA-Public Use
  Company Number: FR-PFIZER INC-2010162202

PATIENT
  Age: 69 Year
  Sex: Male
  Weight: 81 kg

DRUGS (2)
  1. RHINADVIL [Suspect]
     Indication: RHINITIS
     Dosage: 1 DF, 3X/DAY
     Route: 048
     Dates: start: 20100909, end: 20100911
  2. LEVOTHYROX [Concomitant]
     Indication: THYROIDECTOMY
     Dosage: 125 UG, 1X/DAY
     Route: 048
     Dates: start: 20080721

REACTIONS (1)
  - URINARY RETENTION [None]
